FAERS Safety Report 18268520 (Version 1)
Quarter: 2020Q3

REPORT INFORMATION
  Report Type: Spontaneous
  Country: US (occurrence: US)
  Receive Date: 20200915
  Receipt Date: 20200915
  Transmission Date: 20201103
  Serious: No
  Sender: FDA-Public Use
  Company Number: US-MYLANLABS-2020M1077817

PATIENT
  Sex: Female

DRUGS (1)
  1. ESTRADIOL TRANSDERMAL SYSTEM [Suspect]
     Active Substance: ESTRADIOL
     Indication: BLOOD OESTROGEN DECREASED
     Dosage: 0.05 MILLIGRAM, QD, (TWICE WEEKLY)
     Route: 062

REACTIONS (3)
  - Application site rash [Recovering/Resolving]
  - Product adhesion issue [Recovering/Resolving]
  - Product quality issue [Recovering/Resolving]
